FAERS Safety Report 14794110 (Version 1)
Quarter: 2018Q2

REPORT INFORMATION
  Report Type: Spontaneous
  Country: IT (occurrence: IT)
  Receive Date: 20180423
  Receipt Date: 20180423
  Transmission Date: 20180711
  Serious: Yes (Hospitalization)
  Sender: FDA-Public Use
  Company Number: IT-TEVA-2018-IT-885325

PATIENT
  Age: 84 Year
  Sex: Female

DRUGS (21)
  1. ARANESP 60 MICROGRAM [Concomitant]
  2. DIBASE [Concomitant]
     Active Substance: CHOLECALCIFEROL
  3. DORZOLAMIDE [Concomitant]
     Active Substance: DORZOLAMIDE
  4. DOBETIN (CYANOCOBALAMIN) [Concomitant]
     Active Substance: CYANOCOBALAMIN
  5. OLEVIA CAPSULE, 1000 MILLIGRAM [Concomitant]
  6. DUOPLAVIN [Concomitant]
     Active Substance: ASPIRIN\CLOPIDOGREL
  7. PROCORALAN [Concomitant]
     Active Substance: IVABRADINE
  8. FOLINA SOFT CAPSULES, 5 MILLIGRAM [Concomitant]
  9. LYRICA [Concomitant]
     Active Substance: PREGABALIN
  10. INDAPAMIDE AUROBINDO 1,5 MG PROLONGED RELEASE TABLET [Suspect]
     Active Substance: INDAPAMIDE
     Indication: HYPERTENSION
     Dosage: 1 DOSAGE FORMS DAILY;
     Route: 048
     Dates: start: 20170101, end: 20180107
  11. LASIX [Suspect]
     Active Substance: FUROSEMIDE
     Dosage: 125 MILLIGRAM DAILY;
     Route: 048
     Dates: start: 20170101, end: 20180107
  12. DILADEL [Concomitant]
  13. LANSOX [Concomitant]
     Active Substance: LANSOPRAZOLE
  14. CYMBALTA HARD CAPSULE, 60 MILLIGRAM [Concomitant]
  15. CATAPRESAN TABLETS, 3 MICROGRAM [Concomitant]
  16. LUMIGAN EYEDROPS SOLUTION, 0.3 MG/ML [Concomitant]
  17. LASIX [Suspect]
     Active Substance: FUROSEMIDE
     Indication: HYPERTENSION
     Dosage: 4 DOSAGE FORMS DAILY;
     Route: 048
     Dates: start: 20170101, end: 20180107
  18. SIVASTIN 20 MILLIGRAM [Concomitant]
  19. RELVAR ELLIPTA [Concomitant]
     Active Substance: FLUTICASONE FUROATE\VILANTEROL TRIFENATATE
  20. ALLOPURINOL. [Concomitant]
     Active Substance: ALLOPURINOL
  21. AMLODIPINE [Concomitant]
     Active Substance: AMLODIPINE BESYLATE

REACTIONS (3)
  - Proctalgia [Unknown]
  - Constipation [Unknown]
  - Hypokalaemia [Unknown]

NARRATIVE: CASE EVENT DATE: 20180107
